FAERS Safety Report 5101290-2 (Version None)
Quarter: 2006Q3

REPORT INFORMATION
  Report Type: 
  Country: None (occurrence: None)
  Receive Date: 20060911
  Receipt Date: 20060830
  Transmission Date: 20061208
  Serious: Yes (Hospitalization)
  Sender: FDA-Public Use
  Company Number: DE-AVENTIS-200612576DE

PATIENT
  Age: 60 Year
  Sex: Male

DRUGS (6)
  1. TAXOTERE [Suspect]
     Indication: GASTRIC CANCER
  2. FLUOROURACIL [Suspect]
     Indication: GASTRIC CANCER
  3. FOLINSAEURE [Suspect]
     Indication: GASTRIC CANCER
  4. OXALIPLATIN [Suspect]
     Indication: GASTRIC CANCER
  5. FORTECORTIN [Concomitant]
  6. KEVATRIL [Concomitant]

REACTIONS (1)
  - CEREBROVASCULAR ACCIDENT [None]
